FAERS Safety Report 5671055-1 (Version None)
Quarter: 2008Q1

REPORT INFORMATION
  Report Type: 
  Country: None (occurrence: None)
  Receive Date: 20080313
  Receipt Date: 20080303
  Transmission Date: 20080703
  Serious: Yes (Other)
  Sender: FDA-Public Use
  Company Number: 2008S1003769

PATIENT
  Age: 42 Year
  Sex: Male

DRUGS (1)
  1. NAPROXEN TABLETS, USP (500 MG) [Suspect]
     Dosage: 500 MG;TWICE A DAY
     Dates: start: 20070813

REACTIONS (1)
  - RENAL FAILURE [None]
